FAERS Safety Report 8766194 (Version 2)
Quarter: 2012Q4

REPORT INFORMATION
  Report Type: 
  Country: SE (occurrence: SE)
  Receive Date: 20120904
  Receipt Date: 20121002
  Transmission Date: 20130627
  Serious: Yes (Hospitalization)
  Sender: FDA-Public Use
  Company Number: SE-ROCHE-1104390

PATIENT
  Age: 32 Year
  Sex: Female

DRUGS (4)
  1. IKTORIVIL [Suspect]
     Indication: PRODUCT USED FOR UNKNOWN INDICATION
  2. INFLEXAL [Suspect]
     Indication: IMMUNISATION
     Dosage: 0.5 mlt lt t
     Route: 065
     Dates: start: 20111115, end: 20111115
  3. ERGENYL [Suspect]
     Indication: PRODUCT USED FOR UNKNOWN INDICATION
  4. OLANZAPINE [Suspect]
     Indication: PRODUCT USED FOR UNKNOWN INDICATION

REACTIONS (7)
  - Convulsion [Unknown]
  - Muscle spasms [Unknown]
  - Hallucination [Unknown]
  - Chills [Unknown]
  - Pyrexia [Unknown]
  - Flushing [Unknown]
  - Confusional state [Unknown]
